FAERS Safety Report 13196108 (Version 1)
Quarter: 2017Q1

REPORT INFORMATION
  Report Type: Spontaneous
  Country: DE (occurrence: DE)
  Receive Date: 20170208
  Receipt Date: 20170208
  Transmission Date: 20170428
  Serious: Yes (Hospitalization, Other)
  Sender: FDA-Public Use
  Company Number: DE-AUROBINDO-AUR-APL-2017-29282

PATIENT
  Age: 81 Year
  Sex: Female

DRUGS (4)
  1. RISPERIDONE 4MG [Interacting]
     Active Substance: RISPERIDONE
     Indication: MAJOR DEPRESSION
     Dosage: 4 MG, UNK
     Route: 065
  2. CEFUROXIME. [Concomitant]
     Active Substance: CEFUROXIME
     Indication: URINARY TRACT INFECTION
     Dosage: UNK
     Route: 065
  3. METRONIDAZOLE. [Suspect]
     Active Substance: METRONIDAZOLE
     Indication: GASTROENTERITIS CLOSTRIDIAL
     Dosage: 400 MG, 3 TIMES A DAY (DAILY DOSAGE OF 1,200 MG (IN 400 MG TABLETS))
     Route: 065
  4. VENLAFAXINE [Interacting]
     Active Substance: VENLAFAXINE HYDROCHLORIDE
     Indication: MAJOR DEPRESSION
     Dosage: 187.5 MG, UNK
     Route: 065

REACTIONS (4)
  - Orthostatic hypotension [Recovering/Resolving]
  - Drug level increased [Recovering/Resolving]
  - Hyponatraemia [Recovering/Resolving]
  - Drug interaction [Recovering/Resolving]
